FAERS Safety Report 24771737 (Version 5)
Quarter: 2025Q1

REPORT INFORMATION
  Report Type: Spontaneous
  Country: DE (occurrence: DE)
  Receive Date: 20241224
  Receipt Date: 20250219
  Transmission Date: 20250409
  Serious: Yes (Disabling)
  Sender: BRISTOL-MYERS SQUIBB COMPANY
  Company Number: DE-BRISTOL-MYERS SQUIBB COMPANY-2024-197084

PATIENT
  Age: 42 Year
  Sex: Male

DRUGS (3)
  1. ELIQUIS [Suspect]
     Active Substance: APIXABAN
     Indication: Superficial vein thrombosis
     Dates: start: 20240730, end: 202408
  2. ELIQUIS [Suspect]
     Active Substance: APIXABAN
     Dates: start: 20240806, end: 20240914
  3. ELIQUIS [Suspect]
     Active Substance: APIXABAN
     Dates: start: 20240730, end: 20240805

REACTIONS (45)
  - Diarrhoea [Recovered/Resolved with Sequelae]
  - Cardiovascular disorder [Not Recovered/Not Resolved]
  - Nausea [Not Recovered/Not Resolved]
  - Fatigue [Not Recovered/Not Resolved]
  - Head discomfort [Not Recovered/Not Resolved]
  - Dizziness [Unknown]
  - Oral disorder [Recovering/Resolving]
  - Abdominal pain upper [Unknown]
  - Gastrointestinal disorder [Not Recovered/Not Resolved]
  - Eye disorder [Recovering/Resolving]
  - Vision blurred [Recovering/Resolving]
  - Eye irritation [Recovering/Resolving]
  - Ocular discomfort [Recovering/Resolving]
  - Hypoglycaemia [Not Recovered/Not Resolved]
  - Hyperhidrosis [Unknown]
  - Balance disorder [Unknown]
  - Tinnitus [Not Recovered/Not Resolved]
  - Insomnia [Unknown]
  - Scratch [Unknown]
  - Asthenia [Unknown]
  - Decreased appetite [Unknown]
  - Tongue thrust [Unknown]
  - Dysgeusia [Unknown]
  - Parosmia [Unknown]
  - Off label use [Unknown]
  - Fall [Unknown]
  - Nightmare [Unknown]
  - Sluggishness [Unknown]
  - Cognitive disorder [Unknown]
  - Feeling abnormal [Unknown]
  - Paraesthesia [Unknown]
  - Hypoaesthesia [Unknown]
  - Eye pain [Recovering/Resolving]
  - Temperature intolerance [Not Recovered/Not Resolved]
  - Malaise [Not Recovered/Not Resolved]
  - Peripheral coldness [Not Recovered/Not Resolved]
  - Weight decreased [Unknown]
  - Gingival disorder [Unknown]
  - Apathy [Unknown]
  - Dry eye [Recovering/Resolving]
  - Impaired work ability [Unknown]
  - Feeling hot [Not Recovered/Not Resolved]
  - Feeling cold [Not Recovered/Not Resolved]
  - Abdominal distension [Unknown]
  - Agitation [Unknown]

NARRATIVE: CASE EVENT DATE: 20240101
